FAERS Safety Report 4492414-9 (Version None)
Quarter: 2004Q4

REPORT INFORMATION
  Report Type: 
  Country: None (occurrence: None)
  Receive Date: 20041102
  Receipt Date: 20041102
  Transmission Date: 20050328
  Serious: Yes (Hospitalization)
  Sender: FDA-Public Use
  Company Number: None

PATIENT
  Age: 29 Year
  Sex: Female

DRUGS (8)
  1. METHOTREXATE [Suspect]
     Indication: ECTOPIC PREGNANCY
     Dosage: 200 MG ONE DOSE IM
     Route: 030
     Dates: start: 20040428, end: 20040501
  2. CITROVORUM [Concomitant]
  3. RISPERDAL [Concomitant]
  4. DIOVAN [Concomitant]
  5. COMBIVENT [Concomitant]
  6. FLUTICASONE PROPIONATE [Concomitant]
  7. IBUPROFEN [Concomitant]
  8. PERCOCET [Concomitant]

REACTIONS (2)
  - FLANK PAIN [None]
  - HEPATITIS [None]
